FAERS Safety Report 16699795 (Version 1)
Quarter: 2019Q3

REPORT INFORMATION
  Report Type: Spontaneous
  Country: CN (occurrence: CN)
  Receive Date: 20190813
  Receipt Date: 20190813
  Transmission Date: 20191004
  Serious: Yes (Other)
  Sender: FDA-Public Use
  Company Number: CN-ELI_LILLY_AND_COMPANY-CN201908003112

PATIENT
  Age: 80 Year
  Sex: Male
  Weight: 66 kg

DRUGS (2)
  1. ERBITUX [Suspect]
     Active Substance: CETUXIMAB
     Indication: COLON CANCER RECURRENT
     Dosage: 100 MG, UNKNOWN
     Route: 042
     Dates: start: 20190528, end: 20190528
  2. RALTITREXED [Concomitant]
     Active Substance: RALTITREXED
     Indication: COLON CANCER RECURRENT
     Dosage: 5 MG, UNK
     Route: 041
     Dates: start: 20190528

REACTIONS (2)
  - Hyperhidrosis [Recovering/Resolving]
  - Body temperature increased [Recovering/Resolving]

NARRATIVE: CASE EVENT DATE: 20190528
